FAERS Safety Report 11445958 (Version 5)
Quarter: 2016Q1

REPORT INFORMATION
  Report Type: Report from Study
  Country: ES (occurrence: ES)
  Receive Date: 20150902
  Receipt Date: 20160205
  Transmission Date: 20160525
  Serious: Yes (Death, Hospitalization)
  Sender: FDA-Public Use
  Company Number: ES-CELGENE-ESP-2015080060

PATIENT
  Age: 63 Year
  Sex: Male

DRUGS (32)
  1. FLUCONAZOLE. [Concomitant]
     Active Substance: FLUCONAZOLE
     Indication: INFECTION
     Route: 065
     Dates: start: 20150520
  2. AMIKACIN [Concomitant]
     Active Substance: AMIKACIN
     Indication: INFECTION
     Route: 065
     Dates: start: 20150206, end: 20150522
  3. LINEZOLID. [Concomitant]
     Active Substance: LINEZOLID
     Indication: INFECTION
     Route: 065
     Dates: start: 20150516, end: 20150625
  4. METHYLPREDNISOLONE. [Concomitant]
     Active Substance: METHYLPREDNISOLONE
     Indication: BRONCHOSPASM
     Route: 065
     Dates: start: 20150526
  5. INSULIN [Concomitant]
     Active Substance: INSULIN NOS
     Indication: HYPERGLYCAEMIA
     Route: 065
     Dates: start: 20150529
  6. MEROPENEM. [Concomitant]
     Active Substance: MEROPENEM
     Route: 065
     Dates: start: 20150710, end: 20150720
  7. MEROPENEM. [Concomitant]
     Active Substance: MEROPENEM
     Route: 065
     Dates: start: 20150710, end: 20150720
  8. LEVOFLOXACIN. [Concomitant]
     Active Substance: LEVOFLOXACIN
     Indication: INFECTION
     Route: 065
     Dates: start: 20150508, end: 20150612
  9. COLISTIN [Concomitant]
     Active Substance: COLISTIN
     Indication: INFECTION
     Route: 055
     Dates: start: 20150619, end: 20150625
  10. FUROSEMIDE. [Concomitant]
     Active Substance: FUROSEMIDE
     Indication: RESPIRATORY FAILURE
     Dosage: 300 MILLIGRAM
     Route: 065
     Dates: start: 20150517
  11. POMALIDOMIDE [Suspect]
     Active Substance: POMALIDOMIDE
     Indication: PLASMA CELL MYELOMA
     Route: 048
     Dates: start: 20150514, end: 20150610
  12. MEROPENEM. [Concomitant]
     Active Substance: MEROPENEM
     Indication: INFECTION
     Route: 065
     Dates: start: 20150517, end: 20150522
  13. AMIKACIN [Concomitant]
     Active Substance: AMIKACIN
     Route: 065
     Dates: start: 20150710
  14. PIPERACILLIN/TAZOBACTAM [Concomitant]
     Active Substance: PIPERACILLIN SODIUM\TAZOBACTAM SODIUM
     Indication: INFECTION
     Route: 065
     Dates: start: 20150522, end: 20150608
  15. COLISTIN [Concomitant]
     Active Substance: COLISTIN
     Route: 041
     Dates: start: 20150625, end: 20150630
  16. COLISTIN [Concomitant]
     Active Substance: COLISTIN
     Route: 065
     Dates: start: 20150716
  17. POMALIDOMIDE [Suspect]
     Active Substance: POMALIDOMIDE
     Route: 048
     Dates: start: 20150716, end: 20150731
  18. DEXAMETHASONE. [Suspect]
     Active Substance: DEXAMETHASONE
     Indication: PLASMA CELL MYELOMA
     Route: 065
  19. VANCOMYCIN [Concomitant]
     Active Substance: VANCOMYCIN
     Route: 065
     Dates: start: 20150715, end: 20150716
  20. IMIPENEM [Concomitant]
     Active Substance: IMIPENEM
     Indication: INFECTION
     Route: 065
     Dates: start: 20150612, end: 20150615
  21. TIGECYCLINE. [Concomitant]
     Active Substance: TIGECYCLINE
     Indication: INFECTION
     Route: 041
     Dates: start: 20150625, end: 20150630
  22. VANCOMYCIN [Concomitant]
     Active Substance: VANCOMYCIN
     Indication: INFECTION
     Route: 065
     Dates: start: 20150517, end: 20150608
  23. AMIKACIN [Concomitant]
     Active Substance: AMIKACIN
     Route: 065
     Dates: start: 20150613, end: 20150619
  24. PIPERACILLIN/TAZOBACTAM [Concomitant]
     Active Substance: PIPERACILLIN SODIUM\TAZOBACTAM SODIUM
     Route: 065
     Dates: start: 20150708, end: 20150710
  25. VORICONAZOLE. [Concomitant]
     Active Substance: VORICONAZOLE
     Indication: INFECTION
     Route: 065
     Dates: start: 20150619
  26. G-CSF [Concomitant]
     Active Substance: GRANULOCYTE COLONY-STIMULATING FACTOR NOS
     Indication: SUPPORTIVE CARE
     Route: 065
     Dates: start: 20150612
  27. ACETAZOLAMIDE. [Concomitant]
     Active Substance: ACETAZOLAMIDE
     Indication: RESPIRATORY FAILURE
     Route: 065
     Dates: start: 20150517, end: 20150529
  28. MEROPENEM. [Concomitant]
     Active Substance: MEROPENEM
     Route: 065
     Dates: start: 20150615, end: 20150625
  29. CEFTRIAXONE. [Concomitant]
     Active Substance: CEFTRIAXONE
     Indication: INFECTION
     Route: 065
     Dates: start: 20150508, end: 20150612
  30. LIPOSOMAL AMPHOTERICIN B [Concomitant]
     Active Substance: AMPHOTERICIN B
     Indication: INFECTION
     Route: 065
     Dates: start: 20150714
  31. CAPTOPRIL. [Concomitant]
     Active Substance: CAPTOPRIL
     Indication: HYPERTENSION
     Route: 065
     Dates: start: 20150526
  32. DIGOXIN. [Concomitant]
     Active Substance: DIGOXIN
     Indication: ATRIAL FIBRILLATION
     Route: 065
     Dates: start: 20150526

REACTIONS (3)
  - Plasma cell myeloma [Unknown]
  - Respiratory failure [Fatal]
  - Pulmonary oedema [Fatal]

NARRATIVE: CASE EVENT DATE: 20150517
